FAERS Safety Report 4493380-2 (Version None)
Quarter: 2004Q4

REPORT INFORMATION
  Report Type: 
  Country: None (occurrence: None)
  Receive Date: 20041104
  Receipt Date: 20041014
  Transmission Date: 20050328
  Serious: Yes (Hospitalization)
  Sender: FDA-Public Use
  Company Number: DE-MERCK-0410DEU00494

PATIENT
  Age: 61 Year
  Sex: Male

DRUGS (7)
  1. VIOXX [Suspect]
     Indication: SPONDYLOSIS
     Route: 048
     Dates: start: 20040909, end: 20040910
  2. VENLAFAXINE HYDROCHLORIDE [Suspect]
     Indication: DEPRESSION
     Route: 048
     Dates: start: 20040803, end: 20040910
  3. TRIMIPRAMINE MALEATE [Suspect]
     Indication: DEPRESSION
     Route: 048
     Dates: start: 20040803, end: 20040910
  4. LORAZEPAM [Concomitant]
     Indication: AGITATION
     Route: 048
     Dates: start: 20040803, end: 20040910
  5. CARBIMAZOLE [Concomitant]
     Indication: HYPERTHYROIDISM
     Route: 048
  6. TAMSULOSIN HYDROCHLORIDE [Concomitant]
     Route: 065
     Dates: end: 20040910
  7. SIMVASTATIN [Concomitant]
     Route: 065

REACTIONS (6)
  - C-REACTIVE PROTEIN INCREASED [None]
  - DELUSION [None]
  - HALLUCINATION, OLFACTORY [None]
  - HEPATITIS [None]
  - HEPATOCELLULAR DAMAGE [None]
  - LIPASE INCREASED [None]
